FAERS Safety Report 6563994-4 (Version None)
Quarter: 2010Q1

REPORT INFORMATION
  Report Type: 
  Country: None (occurrence: None)
  Receive Date: 20100131
  Receipt Date: 20100121
  Transmission Date: 20100710
  Serious: Yes (Other)
  Sender: FDA-Public Use
  Company Number: CA-JNJFOC-20090504726

PATIENT
  Age: 47 Year
  Sex: Female

DRUGS (5)
  1. REMICADE [Suspect]
     Indication: RHEUMATOID ARTHRITIS
     Route: 042
  2. LEVAQUIN [Suspect]
     Indication: PNEUMONIA
  3. LEVAQUIN [Suspect]
     Indication: URINARY TRACT INFECTION
  4. PREDNISONE [Concomitant]
  5. TYLENOL W/ CODEINE NO. 3 [Concomitant]

REACTIONS (7)
  - BLOOD PRESSURE DECREASED [None]
  - CYANOSIS [None]
  - INSOMNIA [None]
  - PAIN IN EXTREMITY [None]
  - PNEUMONIA [None]
  - URINARY TRACT INFECTION [None]
  - URTICARIA [None]
